FAERS Safety Report 20778615 (Version 1)
Quarter: 2022Q2

REPORT INFORMATION
  Report Type: Spontaneous
  Country: US (occurrence: US)
  Receive Date: 20220503
  Receipt Date: 20220503
  Transmission Date: 20220720
  Serious: No
  Sender: FDA-Public Use
  Company Number: US-PFIZER INC-2020214482

PATIENT
  Age: 49 Year
  Sex: Male

DRUGS (1)
  1. LYRICA CR [Suspect]
     Active Substance: PREGABALIN
     Dosage: 330 MG, 2X/DAY

REACTIONS (4)
  - Off label use [Unknown]
  - Product use issue [Unknown]
  - Limb discomfort [Unknown]
  - Feeling abnormal [Unknown]
